FAERS Safety Report 5163811-3 (Version None)
Quarter: 2006Q4

REPORT INFORMATION
  Report Type: 
  Country: None (occurrence: None)
  Receive Date: 20061129
  Receipt Date: 20061129
  Transmission Date: 20070319
  Serious: Yes (Hospitalization)
  Sender: FDA-Public Use
  Company Number: None

PATIENT
  Age: 42 Year
  Sex: Male

DRUGS (1)
  1. DEPAKOTE ER [Suspect]
     Indication: CONVULSION
     Dosage: 1GM BID PO
     Route: 048
     Dates: start: 20060415, end: 20060614

REACTIONS (9)
  - ACTH STIMULATION TEST ABNORMAL [None]
  - DECREASED APPETITE [None]
  - DRUG LEVEL INCREASED [None]
  - FATIGUE [None]
  - HAEMATURIA [None]
  - INCORRECT DOSE ADMINISTERED [None]
  - JAUNDICE [None]
  - OCULAR ICTERUS [None]
  - THROMBOCYTOPENIA [None]
